FAERS Safety Report 10917185 (Version 1)
Quarter: 2015Q1

REPORT INFORMATION
  Report Type: Spontaneous
  Country: US (occurrence: None)
  Receive Date: 20150312
  Receipt Date: 20150312
  Transmission Date: 20150721
  Serious: Yes (Other)
  Sender: FDA-Public Use
  Company Number: None

PATIENT
  Age: 57 Year
  Sex: Male
  Weight: 58.97 kg

DRUGS (3)
  1. ACETAMINOPHEN. [Concomitant]
     Active Substance: ACETAMINOPHEN
  2. EMEND [Suspect]
     Active Substance: APREPITANT
     Indication: PROPHYLAXIS OF NAUSEA AND VOMITING
  3. EMEND [Suspect]
     Active Substance: APREPITANT

REACTIONS (5)
  - Dyspnoea [None]
  - Back pain [None]
  - Infusion related reaction [None]
  - Hypersensitivity [None]
  - Flushing [None]

NARRATIVE: CASE EVENT DATE: 20141216
